FAERS Safety Report 6185061-4 (Version None)
Quarter: 2009Q2

REPORT INFORMATION
  Report Type: 
  Country: None (occurrence: None)
  Receive Date: 20090511
  Receipt Date: 20090430
  Transmission Date: 20091009
  Serious: Yes (Hospitalization)
  Sender: FDA-Public Use
  Company Number: TH-BAYER-200919791GPV

PATIENT
  Age: 44 Year
  Sex: Male

DRUGS (2)
  1. ULTRAVIST 300 [Suspect]
     Indication: COMPUTERISED TOMOGRAM
     Dates: start: 20090430, end: 20090430
  2. ULTRAVIST 300 [Suspect]
     Dates: start: 20090430, end: 20090430

REACTIONS (3)
  - DYSPNOEA [None]
  - SNEEZING [None]
  - SWELLING FACE [None]
